FAERS Safety Report 12224966 (Version 1)
Quarter: 2016Q1

REPORT INFORMATION
  Report Type: Report from Study
  Country: US (occurrence: US)
  Receive Date: 20160331
  Receipt Date: 20160331
  Transmission Date: 20160526
  Serious: Yes (Death, Life-Threatening, Hospitalization, Other)
  Sender: FDA-Public Use
  Company Number: US-ELI_LILLY_AND_COMPANY-US201603009991

PATIENT
  Age: 75 Year
  Sex: Male
  Weight: 52.61 kg

DRUGS (16)
  1. LOVENOX [Concomitant]
     Active Substance: ENOXAPARIN SODIUM
     Dosage: UNK
     Dates: start: 20151110, end: 20151117
  2. CARVEDILOL. [Concomitant]
     Active Substance: CARVEDILOL
     Dosage: UNK
     Dates: start: 1999, end: 20151117
  3. LEVEMIR [Concomitant]
     Active Substance: INSULIN DETEMIR
     Dosage: FLEXTOUCH
     Dates: start: 20151020, end: 20151117
  4. ZOFRAN [Concomitant]
     Active Substance: ONDANSETRON HYDROCHLORIDE
     Dosage: UNK
     Dates: start: 20151113
  5. GEMCITABINE HYDROCHLORIDE. [Suspect]
     Active Substance: GEMCITABINE HYDROCHLORIDE
     Indication: PANCREATIC CARCINOMA
     Dosage: 1000 MG/M2, SINGLE
     Route: 042
     Dates: start: 20151110, end: 20151110
  6. PACLITAXEL, ABI-007 PROTEIN BOUND [Suspect]
     Active Substance: PACLITAXEL
     Indication: PANCREATIC CARCINOMA
     Dosage: 125 MG/M2, SINGLE
     Route: 042
     Dates: start: 20151110, end: 20151110
  7. DECADRON [Concomitant]
     Active Substance: DEXAMETHASONE
     Dosage: UNK
     Dates: start: 201511, end: 201511
  8. PACLITAXEL, ABI-007 PROTEIN BOUND [Suspect]
     Active Substance: PACLITAXEL
     Dosage: 100 MG/M2, WEEKLY IN 4-WEEK CYCLES (3 WEEKS ON, 1 WEEK OFF)
     Route: 042
     Dates: start: 20151118, end: 20151125
  9. BABY ASPIRIN [Concomitant]
     Active Substance: ASPIRIN
     Dosage: UNK
     Dates: start: 1999
  10. GEMCITABINE HYDROCHLORIDE. [Suspect]
     Active Substance: GEMCITABINE HYDROCHLORIDE
     Dosage: 800 MG/M2, WEEKLY IN 4-WEEK CYCLES (3 WEEKS ON, 1 WEEK OFF)
     Route: 042
     Dates: start: 20151118, end: 20151125
  11. METFORMIN [Concomitant]
     Active Substance: METFORMIN HYDROCHLORIDE
     Dosage: UNK
     Dates: start: 2006, end: 20151117
  12. ATORVASTATIN [Concomitant]
     Active Substance: ATORVASTATIN
     Dosage: UNK
     Dates: start: 2003, end: 20151117
  13. HUMALOG [Concomitant]
     Active Substance: INSULIN LISPRO
     Dosage: UNK
     Dates: start: 20151117
  14. LOVENOX [Concomitant]
     Active Substance: ENOXAPARIN SODIUM
     Dosage: UNK
     Dates: end: 20151127
  15. LISINOPRIL. [Concomitant]
     Active Substance: LISINOPRIL
     Dosage: UNK
     Dates: start: 1999, end: 20151117
  16. OXYCODONE [Concomitant]
     Active Substance: OXYCODONE
     Dosage: UNK
     Dates: start: 20151113

REACTIONS (3)
  - Febrile neutropenia [Unknown]
  - Pneumonia [Fatal]
  - Septic shock [Unknown]

NARRATIVE: CASE EVENT DATE: 20151129
